FAERS Safety Report 5962639-1 (Version None)
Quarter: 2008Q4

REPORT INFORMATION
  Report Type: 
  Country: None (occurrence: None)
  Receive Date: 20081121
  Receipt Date: 20081118
  Transmission Date: 20090506
  Serious: Yes (Death, Hospitalization, Other)
  Sender: FDA-Public Use
  Company Number: PHHY2008BR28812

PATIENT
  Age: 85 Year
  Sex: Male

DRUGS (5)
  1. EXELON [Suspect]
     Indication: DEMENTIA ALZHEIMER'S TYPE
     Dosage: 1.5 MG PER DAY
     Route: 048
     Dates: start: 20040101
  2. EXELON [Suspect]
     Dosage: 6 MG, BID
     Route: 048
  3. NEULEPTIL [Concomitant]
     Dosage: 2 DROPS A DAY
     Route: 048
     Dates: end: 20080701
  4. TRAZODONE HCL [Concomitant]
     Dosage: 1 TABLET AT NIGHT
     Route: 048
  5. SEROQUEL [Concomitant]
     Dosage: HALF TABLET IN THE MORNING AND 1 TABLET AT NIGHT
     Route: 048

REACTIONS (11)
  - ANOREXIA [None]
  - BEDRIDDEN [None]
  - CACHEXIA [None]
  - DEHYDRATION [None]
  - FALL [None]
  - FEMUR FRACTURE [None]
  - LIVER DISORDER [None]
  - MALNUTRITION [None]
  - RENAL DISORDER [None]
  - SCAR [None]
  - SURGERY [None]
